FAERS Safety Report 7650066-0 (Version None)
Quarter: 2011Q3

REPORT INFORMATION
  Report Type: 
  Country: None (occurrence: None)
  Receive Date: 20110802
  Receipt Date: 20110802
  Transmission Date: 20111222
  Serious: Yes (Hospitalization)
  Sender: FDA-Public Use
  Company Number: None

PATIENT
  Age: 74 Year
  Sex: Female
  Weight: 77.2 kg

DRUGS (3)
  1. ASPIRIN [Concomitant]
     Route: 048
  2. PRADAXA [Suspect]
     Indication: ATRIAL FIBRILLATION
     Dosage: 150MG
     Route: 048
     Dates: start: 20110601, end: 20110726
  3. DICLOFENAC SODIUM [Concomitant]
     Route: 048

REACTIONS (3)
  - ILEAL ULCER [None]
  - GASTROINTESTINAL HAEMORRHAGE [None]
  - COAGULOPATHY [None]
